FAERS Safety Report 5065368-4 (Version None)
Quarter: 2006Q3

REPORT INFORMATION
  Report Type: 
  Country: None (occurrence: None)
  Receive Date: 20060726
  Receipt Date: 20060717
  Transmission Date: 20061208
  Serious: Yes (Death, Hospitalization)
  Sender: FDA-Public Use
  Company Number: 430003X03USA

PATIENT
  Age: 63 Year
  Sex: Female
  Weight: 68.3 kg

DRUGS (10)
  1. NOVANTRONE [Suspect]
     Indication: CHRONIC MYELOID LEUKAEMIA
     Dosage: 16 MG, 1 IN 1 DAYS, INTRAVENOUS
     Route: 042
     Dates: start: 20030320, end: 20030322
  2. MYLOTARG [Suspect]
     Indication: CHRONIC MYELOID LEUKAEMIA
     Dosage: 13 MG, 1 IN 1 DAYS, INTRAVENOUS
     Route: 042
     Dates: start: 20030307, end: 20030307
  3. FLUDARABINE PHOSPHATE [Suspect]
     Indication: CHRONIC MYELOID LEUKAEMIA
     Dosage: 39 MG, 1 IN 1 DAYS, INTRAVENOUS
     Route: 042
     Dates: start: 20030320, end: 20030324
  4. GEMCITABINE [Suspect]
     Indication: CHRONIC MYELOID LEUKAEMIA
     Dosage: 5652 MG, 1 IN 1 DAYS, INTRAVENOUS
     Route: 042
     Dates: start: 20030320, end: 20030320
  5. FLUCONAZOLE [Concomitant]
  6. HYDROMORPHONE HYDROCHLORIDE [Concomitant]
  7. LORAZEPAM [Concomitant]
  8. LEVOFLOXACIN [Concomitant]
  9. INSULIN [Concomitant]
  10. IMATINIB MESILATE [Concomitant]

REACTIONS (23)
  - ALANINE AMINOTRANSFERASE INCREASED [None]
  - ASCITES [None]
  - ASPARTATE AMINOTRANSFERASE INCREASED [None]
  - BLOOD ALKALINE PHOSPHATASE INCREASED [None]
  - BLOOD UREA INCREASED [None]
  - BONE MARROW FAILURE [None]
  - COAGULOPATHY [None]
  - DISEASE PROGRESSION [None]
  - FEBRILE NEUTROPENIA [None]
  - FLUID OVERLOAD [None]
  - GALLOP RHYTHM PRESENT [None]
  - GENERALISED OEDEMA [None]
  - HEPATIC NEOPLASM MALIGNANT [None]
  - JAUNDICE [None]
  - MENTAL STATUS CHANGES [None]
  - MULTI-ORGAN FAILURE [None]
  - NAUSEA [None]
  - NUCLEAR MAGNETIC RESONANCE IMAGING ABDOMINAL ABNORMAL [None]
  - RALES [None]
  - RENAL CELL CARCINOMA STAGE UNSPECIFIED [None]
  - SPLENOMEGALY [None]
  - VOMITING [None]
  - WEIGHT INCREASED [None]
